FAERS Safety Report 22008050 (Version 1)
Quarter: 2023Q1

REPORT INFORMATION
  Report Type: Report from Study
  Country: CA (occurrence: CA)
  Receive Date: 20230218
  Receipt Date: 20230218
  Transmission Date: 20230417
  Serious: Yes (Other)
  Sender: FDA-Public Use
  Company Number: CA-TAKEDA-2023TUS016773

PATIENT
  Age: 6 Year
  Sex: Male

DRUGS (1)
  1. LISDEXAMFETAMINE DIMESYLATE [Suspect]
     Active Substance: LISDEXAMFETAMINE DIMESYLATE
     Indication: Product used for unknown indication
     Dosage: 10 MILLIGRAM, QD
     Route: 048

REACTIONS (2)
  - Autism spectrum disorder [Unknown]
  - Product use in unapproved indication [Unknown]
